FAERS Safety Report 5545303-2 (Version None)
Quarter: 2007Q4

REPORT INFORMATION
  Report Type: 
  Country: None (occurrence: None)
  Receive Date: 20071211
  Receipt Date: 20071203
  Transmission Date: 20080405
  Serious: Yes (Other)
  Sender: FDA-Public Use
  Company Number: PHBS2007BR20317

PATIENT
  Age: 12 Year
  Sex: Male

DRUGS (1)
  1. CATAFLAM [Suspect]
     Indication: PHARYNGOLARYNGEAL PAIN
     Dosage: 12 DRP/DAY
     Route: 048

REACTIONS (1)
  - ERYTHEMA [None]
